FAERS Safety Report 20883742 (Version 1)
Quarter: 2022Q2

REPORT INFORMATION
  Report Type: Spontaneous
  Country: US (occurrence: US)
  Receive Date: 20220527
  Receipt Date: 20220527
  Transmission Date: 20220721
  Serious: Yes (Hospitalization)
  Sender: FDA-Public Use
  Company Number: US-009507513-2205USA006926

PATIENT
  Age: 71 Year
  Sex: Female
  Weight: 63 kg

DRUGS (10)
  1. KEYTRUDA [Suspect]
     Active Substance: PEMBROLIZUMAB
     Indication: Neoplasm
     Dosage: 200 MG, EVERY 21 DAYS
     Route: 042
     Dates: start: 20220209, end: 20220209
  2. KEYTRUDA [Suspect]
     Active Substance: PEMBROLIZUMAB
     Dosage: 200 MG, EVERY 21 DAYS
     Route: 042
     Dates: start: 20220406
  3. HYDRALAZINE [Concomitant]
     Active Substance: HYDRALAZINE HYDROCHLORIDE
     Dosage: UNK
     Dates: start: 20220206
  4. FUROSEMIDE [Concomitant]
     Active Substance: FUROSEMIDE
     Dosage: UNK
     Dates: start: 20220204
  5. METHYLPREDNISOLONE [Concomitant]
     Active Substance: METHYLPREDNISOLONE
     Dosage: UNK
     Dates: start: 2021, end: 20220401
  6. ROSUVASTATIN [Concomitant]
     Active Substance: ROSUVASTATIN
     Dosage: UNK
     Dates: start: 20220206
  7. LEVOTHYROXINE [Concomitant]
     Active Substance: LEVOTHYROXINE
     Dosage: UNK
     Dates: start: 2020
  8. FOLIC ACID [Concomitant]
     Active Substance: FOLIC ACID
     Dosage: UNK
     Dates: start: 2020
  9. CODEINE SULFATE [Concomitant]
     Active Substance: CODEINE SULFATE
     Dosage: UNK
     Dates: start: 2021
  10. LORAZEPAM [Concomitant]
     Active Substance: LORAZEPAM
     Dosage: UNK
     Dates: start: 20220128

REACTIONS (3)
  - Hypertransaminasaemia [Recovered/Resolved]
  - Alanine aminotransferase increased [Recovered/Resolved]
  - Alanine aminotransferase increased [Recovered/Resolved]

NARRATIVE: CASE EVENT DATE: 20220223
